FAERS Safety Report 6244208-1 (Version None)
Quarter: 2009Q2

REPORT INFORMATION
  Report Type: 
  Country: None (occurrence: None)
  Receive Date: 20090625
  Receipt Date: 20090616
  Transmission Date: 20091009
  Serious: Yes (Hospitalization)
  Sender: FDA-Public Use
  Company Number: US-BIOGENIDEC-2009BI009263

PATIENT
  Age: 45 Year
  Sex: Male

DRUGS (1)
  1. TYSABRI [Suspect]
     Indication: CROHN'S DISEASE
     Route: 042
     Dates: start: 20090106

REACTIONS (7)
  - CROHN'S DISEASE [None]
  - FALL [None]
  - GASTROINTESTINAL STOMA COMPLICATION [None]
  - LOSS OF CONSCIOUSNESS [None]
  - OPEN WOUND [None]
  - POST PROCEDURAL INFECTION [None]
  - SMALL INTESTINAL OBSTRUCTION [None]
